FAERS Safety Report 5144993-6 (Version None)
Quarter: 2006Q4

REPORT INFORMATION
  Report Type: 
  Country: None (occurrence: None)
  Receive Date: 20061107
  Receipt Date: 20061023
  Transmission Date: 20070319
  Serious: Yes (Hospitalization)
  Sender: FDA-Public Use
  Company Number: JP-BAYER-200611168BYL

PATIENT
  Age: 71 Year
  Sex: Male

DRUGS (8)
  1. CIPROXAN-I.V. [Suspect]
     Indication: BRONCHOPULMONARY ASPERGILLOSIS
     Route: 041
  2. VFEND [Concomitant]
     Route: 065
  3. ADONA [Concomitant]
     Route: 065
  4. TRANSAMIN [Concomitant]
     Route: 065
  5. AMOBAN [Concomitant]
     Route: 048
  6. BUP-4 [Concomitant]
     Route: 048
  7. CLEANAL [Concomitant]
     Route: 048
  8. PURSENNID [Concomitant]
     Route: 048

REACTIONS (1)
  - HYPOGLYCAEMIA [None]
